FAERS Safety Report 12343326 (Version 2)
Quarter: 2016Q2

REPORT INFORMATION
  Report Type: Spontaneous
  Country: US (occurrence: US)
  Receive Date: 20160506
  Receipt Date: 20160609
  Transmission Date: 20160815
  Serious: No
  Sender: FDA-Public Use
  Company Number: PHEH2016US010974

PATIENT
  Age: 58 Year
  Sex: Female
  Weight: 70 kg

DRUGS (3)
  1. TRILEPTAL [Suspect]
     Active Substance: OXCARBAZEPINE
     Indication: BURNING SENSATION
  2. TRILEPTAL [Suspect]
     Active Substance: OXCARBAZEPINE
     Indication: PARAESTHESIA
  3. TRILEPTAL [Suspect]
     Active Substance: OXCARBAZEPINE
     Indication: HYPOAESTHESIA
     Dosage: 300 MG, QD
     Route: 048
     Dates: start: 20150223

REACTIONS (2)
  - Oral candidiasis [Not Recovered/Not Resolved]
  - Fungal infection [Recovering/Resolving]

NARRATIVE: CASE EVENT DATE: 201503
